FAERS Safety Report 12671084 (Version 2)
Quarter: 2016Q3

REPORT INFORMATION
  Report Type: Spontaneous
  Country: US (occurrence: US)
  Receive Date: 20160822
  Receipt Date: 20160831
  Transmission Date: 20161109
  Serious: Yes (Other)
  Sender: FDA-Public Use
  Company Number: US-DRREDDYS-USA/USA/16/0082544

PATIENT
  Age: 21 Year
  Sex: Female

DRUGS (11)
  1. CLINDAMYCIN [Concomitant]
     Active Substance: CLINDAMYCIN\CLINDAMYCIN PHOSPHATE
     Indication: HIDRADENITIS
     Route: 061
  2. UREA. [Concomitant]
     Active Substance: UREA
     Indication: KERATOSIS FOLLICULAR
     Route: 065
  3. ADAPALENE. [Concomitant]
     Active Substance: ADAPALENE
     Indication: KERATOSIS FOLLICULAR
     Route: 065
  4. CEPHALEXIN. [Concomitant]
     Active Substance: CEPHALEXIN
     Indication: HIDRADENITIS
     Route: 065
  5. TRIAMCINOLONE [Concomitant]
     Active Substance: TRIAMCINOLONE
     Indication: KERATOSIS FOLLICULAR
     Route: 065
  6. CLOBETASOL [Concomitant]
     Active Substance: CLOBETASOL
     Indication: KERATOSIS FOLLICULAR
     Route: 065
  7. TRIAMCINOLONE [Concomitant]
     Active Substance: TRIAMCINOLONE
     Indication: HIDRADENITIS
     Dosage: INTRALESIONAL
     Route: 065
  8. TRETINOIN. [Concomitant]
     Active Substance: TRETINOIN
     Indication: KERATOSIS FOLLICULAR
     Route: 065
  9. CHLORHEXIDINE [Concomitant]
     Active Substance: CHLORHEXIDINE
     Indication: HIDRADENITIS
     Route: 065
  10. ISOTRETINOIN NOT OTHERWISE SPECIFIED [Suspect]
     Active Substance: ISOTRETINOIN
     Indication: PRODUCT USED FOR UNKNOWN INDICATION
     Route: 065
  11. DOXYCYCLINE. [Concomitant]
     Active Substance: DOXYCYCLINE
     Indication: HIDRADENITIS
     Route: 065

REACTIONS (1)
  - Suicidal ideation [Unknown]
